FAERS Safety Report 19069667 (Version 1)
Quarter: 2021Q1

REPORT INFORMATION
  Report Type: Spontaneous
  Country: US (occurrence: US)
  Receive Date: 20210329
  Receipt Date: 20210329
  Transmission Date: 20210420
  Serious: No
  Sender: FDA-Public Use
  Company Number: US-TEVA-2021-US-1894046

PATIENT
  Sex: Female

DRUGS (1)
  1. TEVA TREPROSTINIL [Suspect]
     Active Substance: TREPROSTINIL
     Indication: PULMONARY ARTERIAL HYPERTENSION
     Dosage: 43NG/KG/MIN, CONTINUOUS
     Route: 042

REACTIONS (1)
  - Dyspnoea exertional [Unknown]
